FAERS Safety Report 5000696-X (Version None)
Quarter: 2006Q2

REPORT INFORMATION
  Report Type: 
  Country: None (occurrence: None)
  Receive Date: 20060512
  Receipt Date: 20060403
  Transmission Date: 20061013
  Serious: Yes (Other)
  Sender: FDA-Public Use
  Company Number: DE-AVENTIS-200610934DE

PATIENT
  Age: 24 Year
  Sex: Male
  Weight: 67 kg

DRUGS (3)
  1. CLAFORAN [Suspect]
     Indication: BORRELIA BURGDORFERI SEROLOGY POSITIVE
     Route: 042
     Dates: start: 20060313, end: 20060401
  2. CLAFORAN [Suspect]
     Route: 042
     Dates: start: 20060401
  3. ITRACONAZOL [Concomitant]
     Indication: SYSTEMIC CANDIDA
     Route: 048
     Dates: start: 20060327, end: 20060418

REACTIONS (6)
  - CIRCULATORY COLLAPSE [None]
  - DIZZINESS [None]
  - JARISCH-HERXHEIMER REACTION [None]
  - LEUKOPENIA [None]
  - SOMNOLENCE [None]
  - TREMOR [None]
